FAERS Safety Report 7115086-3 (Version None)
Quarter: 2010Q4

REPORT INFORMATION
  Report Type: 
  Country: None (occurrence: None)
  Receive Date: 20101117
  Receipt Date: 20101117
  Transmission Date: 20110411
  Serious: Yes (Other)
  Sender: FDA-Public Use
  Company Number: None

PATIENT
  Sex: Female

DRUGS (1)
  1. IODINE [Suspect]
     Indication: PREOPERATIVE CARE
     Dates: start: 20100614, end: 20100614

REACTIONS (4)
  - BLISTER [None]
  - SKIN DISCOLOURATION [None]
  - SKIN EXFOLIATION [None]
  - THERMAL BURN [None]
